FAERS Safety Report 10045549 (Version 1)
Quarter: 2014Q1

REPORT INFORMATION
  Report Type: Spontaneous
  Country: US (occurrence: None)
  Receive Date: 20140306
  Receipt Date: 20140306
  Transmission Date: 20141002
  Serious: Yes (Other)
  Sender: FDA-Public Use
  Company Number: 163-21880-13060604

PATIENT
  Age: 66 Year
  Sex: Male
  Weight: 72.7 kg

DRUGS (9)
  1. REVLIMID (LENALIDOMIDE) (15 MILLIGRAM, CAPSULES) [Suspect]
     Indication: PLASMA CELL MYELOMA
     Dosage: 15 MG, 21 IN 28 D, PO
     Route: 048
     Dates: start: 20130319, end: 20130528
  2. ZOMETA (ZOLEDRONIC ACID) [Concomitant]
  3. PROTONIX [Concomitant]
  4. GLYBURIDE (GLIBENCLAMIDE) [Concomitant]
  5. JANUVIA (SITAGLIPTIN PHOSPHATE) [Concomitant]
  6. METFORMIN (METFORMIN) [Concomitant]
  7. ACYCLOVIR (ACICLOVIR) [Concomitant]
  8. VELCADE (BORTEZOMIB) [Concomitant]
  9. DEXAMETHASONE (DEXAMETHASONE) [Concomitant]

REACTIONS (1)
  - Platelet count decreased [None]
